FAERS Safety Report 8450572-5 (Version None)
Quarter: 2012Q2

REPORT INFORMATION
  Report Type: 
  Country: None (occurrence: None)
  Receive Date: 20120620
  Receipt Date: 20120606
  Transmission Date: 20120825
  Serious: Yes (Hospitalization, Other)
  Sender: FDA-Public Use
  Company Number: TW-RANBAXY-2012RR-57078

PATIENT
  Age: 32 Year
  Sex: Male

DRUGS (6)
  1. VENLAFAXINE HCL [Concomitant]
     Indication: SCHIZOAFFECTIVE DISORDER
     Dosage: 150 MG/DAY
     Route: 065
  2. LITHIUM [Concomitant]
     Indication: SCHIZOAFFECTIVE DISORDER
     Dosage: 300 MG/DAY
     Route: 065
  3. ARIPIPRAZOLE [Concomitant]
     Dosage: 5 MG/DAY
  4. PALIPERIDONE [Suspect]
     Indication: SCHIZOAFFECTIVE DISORDER
     Dosage: 3 MG/DAY
     Route: 065
  5. ARIPIPRAZOLE [Concomitant]
     Indication: SCHIZOAFFECTIVE DISORDER
     Dosage: 2.5 MG/DAY
     Route: 065
  6. RISPERIDONE [Suspect]
     Indication: SCHIZOAFFECTIVE DISORDER
     Dosage: 4 MG/DAY
     Route: 065

REACTIONS (2)
  - RESPIRATORY FAILURE [None]
  - NEUROLEPTIC MALIGNANT SYNDROME [None]
